FAERS Safety Report 8242725-6 (Version None)
Quarter: 2012Q1

REPORT INFORMATION
  Report Type: 
  Country: None (occurrence: None)
  Receive Date: 20120329
  Receipt Date: 20120321
  Transmission Date: 20120608
  Serious: Yes (Hospitalization)
  Sender: FDA-Public Use
  Company Number: US-BAYER-2011-091821

PATIENT
  Age: 30 Year
  Sex: Female
  Weight: 82 kg

DRUGS (8)
  1. DOC-Q-LACE [Concomitant]
     Dosage: 100 MG, UNK
     Route: 048
     Dates: start: 20090802
  2. HYDROCODONE BITARTRATE AND ACETAMINOPHEN [Concomitant]
     Dosage: 5/500 MG, UNK
     Route: 048
     Dates: start: 20090802, end: 20091008
  3. DROSPIRENONE AND ETHINYL ESTRADIOL [Suspect]
     Indication: CONTRACEPTION
     Dosage: UNK
     Dates: start: 20080701, end: 20081001
  4. MECLIZINE [Concomitant]
     Dosage: 25 MG, UNK
     Route: 048
     Dates: start: 20090802
  5. YASMIN [Suspect]
     Indication: CONTRACEPTION
     Dosage: UNK
     Dates: start: 20071201, end: 20080601
  6. FERROUS SULFATE TAB [Concomitant]
     Dosage: 325 MG, UNK
     Dates: start: 20090802
  7. IBUPROFEN [Concomitant]
     Dosage: 600 MG, UNK
     Route: 048
     Dates: start: 20090802
  8. CYCLOBENZAPRINE HCL [Concomitant]
     Dosage: 10 MG, UNK
     Route: 048
     Dates: start: 20090802

REACTIONS (3)
  - PAIN [None]
  - GALLBLADDER INJURY [None]
  - CHOLECYSTITIS CHRONIC [None]
